FAERS Safety Report 4941664-3 (Version None)
Quarter: 2006Q1

REPORT INFORMATION
  Report Type: 
  Country: None (occurrence: None)
  Receive Date: 20060313
  Receipt Date: 20060214
  Transmission Date: 20060701
  Serious: Yes (Other)
  Sender: FDA-Public Use
  Company Number: JP-ROCHE-439015

PATIENT
  Age: 55 Year
  Sex: Female

DRUGS (1)
  1. TAMIFLU [Suspect]
     Indication: INFLUENZA
     Route: 048
     Dates: start: 20060201, end: 20060202

REACTIONS (4)
  - ABDOMINAL PAIN UPPER [None]
  - HAEMATURIA [None]
  - INTESTINAL HAEMORRHAGE [None]
  - VOMITING [None]
